FAERS Safety Report 5521739-0 (Version None)
Quarter: 2007Q4

REPORT INFORMATION
  Report Type: 
  Country: None (occurrence: None)
  Receive Date: 20071120
  Receipt Date: 20071114
  Transmission Date: 20080405
  Serious: Yes (Death)
  Sender: FDA-Public Use
  Company Number: CH-AVENTIS-200720507GDDC

PATIENT
  Age: 76 Year
  Sex: Male
  Weight: 89 kg

DRUGS (5)
  1. APIDRA [Suspect]
     Dosage: DOSE QUANTITY: 10
     Dates: start: 20060130
  2. APIDRA [Suspect]
     Dosage: DOSE QUANTITY: 30
     Dates: end: 20060414
  3. OPTIPEN (INSULIN PUMP) [Suspect]
  4. METFORMIN HYDROCHLORIDE [Concomitant]
     Dates: end: 20060414
  5. ORAL ANTIDIABETICS [Concomitant]
     Dates: end: 20060414

REACTIONS (1)
  - DEATH [None]
